FAERS Safety Report 14390481 (Version 2)
Quarter: 2018Q3

REPORT INFORMATION
  Report Type: Spontaneous
  Country: IN (occurrence: IN)
  Receive Date: 20180116
  Receipt Date: 20180921
  Transmission Date: 20181010
  Serious: No
  Sender: FDA-Public Use
  Company Number: IN-LUPIN PHARMACEUTICALS INC.-2017-05535

PATIENT
  Sex: Female

DRUGS (6)
  1. GLYCOLATE [Concomitant]
     Indication: PRODUCT USED FOR UNKNOWN INDICATION
     Route: 065
  2. SIZOPIN [Concomitant]
     Indication: PRODUCT USED FOR UNKNOWN INDICATION
     Route: 065
  3. BECOSULES                          /07428701/ [Concomitant]
     Indication: PRODUCT USED FOR UNKNOWN INDICATION
     Route: 065
  4. DAYO?OD FIL.C.TAB ER 250 MG [Suspect]
     Active Substance: DIVALPROEX SODIUM
     Indication: INSOMNIA
     Dosage: UNK
     Route: 048
  5. BACTINE                            /01256301/ [Concomitant]
     Active Substance: BENZALKONIUM CHLORIDE\LIDOCAINE HYDROCHLORIDE
     Indication: PRODUCT USED FOR UNKNOWN INDICATION
     Route: 065
  6. DAYO?OD FIL.C.TAB ER 500 MG [Suspect]
     Active Substance: DIVALPROEX SODIUM
     Indication: INSOMNIA
     Dosage: UNK
     Route: 048

REACTIONS (6)
  - Off label use [Unknown]
  - Decreased activity [Unknown]
  - Mouth swelling [Unknown]
  - Somnolence [Not Recovered/Not Resolved]
  - Mouth ulceration [Unknown]
  - Abdominal pain [Unknown]
